FAERS Safety Report 5228404-8 (Version None)
Quarter: 2007Q1

REPORT INFORMATION
  Report Type: 
  Country: None (occurrence: None)
  Receive Date: 20070131
  Receipt Date: 20070131
  Transmission Date: 20070707
  Serious: No
  Sender: FDA-Public Use
  Company Number: None

PATIENT
  Age: 15 Year
  Sex: Male
  Weight: 56 kg

DRUGS (4)
  1. CLINDAMYCIN [Suspect]
     Dosage: 600MG Q8 IV
     Route: 042
  2. ANCEF [Concomitant]
  3. NORCO [Concomitant]
  4. INOPSINE [Concomitant]

REACTIONS (4)
  - ERYTHEMA [None]
  - INFUSION RELATED REACTION [None]
  - PRURITUS [None]
  - RASH MACULAR [None]
